FAERS Safety Report 7580082-9 (Version None)
Quarter: 2011Q2

REPORT INFORMATION
  Report Type: 
  Country: None (occurrence: None)
  Receive Date: 20110622
  Receipt Date: 20110607
  Transmission Date: 20111010
  Serious: Yes (Hospitalization)
  Sender: FDA-Public Use
  Company Number: 2009AP004308

PATIENT
  Age: 47 Year
  Sex: Female

DRUGS (8)
  1. DIVALPROEX SODIUM [Concomitant]
  2. SALMETEROL XINAFOATE (SALMETEROL XINAFOATE) [Concomitant]
  3. LAMOTRIGINE [Concomitant]
  4. SERTRALINE HYDROCHLORIDE [Suspect]
     Indication: DEPRESSION
     Dosage: 200 MG; QD PO
     Route: 048
  5. QUETIAPINE FUMARATE [Concomitant]
  6. CLOZARIL [Suspect]
     Indication: SCHIZOPHRENIA
     Dosage: 150 MG; BID PO, 150 MG; TAB; PO; BID
     Route: 048
     Dates: start: 20080909, end: 20081005
  7. CLONAZEPAM [Concomitant]
  8. FLUTICASONE PROPIONATE [Concomitant]

REACTIONS (9)
  - LOWER RESPIRATORY TRACT INFECTION [None]
  - TACHYCARDIA [None]
  - BODY TEMPERATURE INCREASED [None]
  - MONOCYTE COUNT INCREASED [None]
  - OXYGEN SATURATION DECREASED [None]
  - CARDIOMYOPATHY [None]
  - ASTHMA [None]
  - C-REACTIVE PROTEIN INCREASED [None]
  - TACHYPNOEA [None]
